FAERS Safety Report 4333987-6 (Version None)
Quarter: 2004Q2

REPORT INFORMATION
  Report Type: 
  Country: None (occurrence: None)
  Receive Date: 20040402
  Receipt Date: 20040323
  Transmission Date: 20050107
  Serious: Yes (Death, Other)
  Sender: FDA-Public Use
  Company Number: 2003125242

PATIENT
  Age: 27 Year

DRUGS (2)
  1. VFEND [Suspect]
     Indication: ANTIFUNGAL PROPHYLAXIS
     Dosage: INTRAVENOUS
     Route: 042
  2. ANTIFUNGALS [Concomitant]

REACTIONS (4)
  - ADENOVIRUS INFECTION [None]
  - INFECTION [None]
  - LUNG INFILTRATION [None]
  - RESPIRATORY FAILURE [None]
